FAERS Safety Report 6182021-4 (Version None)
Quarter: 2009Q2

REPORT INFORMATION
  Report Type: 
  Country: None (occurrence: None)
  Receive Date: 20090505
  Receipt Date: 20090421
  Transmission Date: 20091009
  Serious: Yes (Hospitalization, Other)
  Sender: FDA-Public Use
  Company Number: 2009US001323

PATIENT
  Age: 41 Year
  Sex: Male

DRUGS (9)
  1. PROGRAF [Suspect]
     Indication: TRANSPLANT
  2. PROTOPIC [Suspect]
     Indication: TRANSPLANT REJECTION
  3. AMBISOME [Suspect]
     Indication: FUNGAL INFECTION
  4. ANTITHYMOCYTE IMMUNOGLOBULIN (ANTITHYMOCYTE IMMUNOGLOBULIN) [Suspect]
     Indication: TRANSPLANT
     Dosage: 1.5 MG/KG, UID/QD
  5. MYCOPHENOLATE MOFETIL [Suspect]
     Indication: TRANSPLANT
     Dosage: UID/QD
  6. METHYLPREDNISOLONE 16MG TAB [Suspect]
     Indication: TRANSPLANT
     Dosage: 500 MG
  7. PREDNISOLONE [Suspect]
     Indication: TRANSPLANT
     Dosage: 20 MG
  8. CAMPATH [Suspect]
     Indication: TRANSPLANT REJECTION
  9. EVEROLIMUS(EVEROLIMUS) [Suspect]
     Indication: TRANSPLANT

REACTIONS (9)
  - CLOSTRIDIUM DIFFICILE COLITIS [None]
  - CYTOMEGALOVIRUS INFECTION [None]
  - FUNGAL SKIN INFECTION [None]
  - HEADACHE [None]
  - HYPERTENSION [None]
  - METABOLIC DISORDER [None]
  - NEPHROPATHY TOXIC [None]
  - PAPILLOMA VIRAL INFECTION [None]
  - TRANSPLANT REJECTION [None]
